FAERS Safety Report 7359684-0 (Version None)
Quarter: 2011Q1

REPORT INFORMATION
  Report Type: 
  Country: None (occurrence: None)
  Receive Date: 20110317
  Receipt Date: 20100616
  Transmission Date: 20110831
  Serious: No
  Sender: FDA-Public Use
  Company Number: US-PFIZER INC-2010027378

PATIENT
  Sex: Female
  Weight: 99.8 kg

DRUGS (3)
  1. NORVASC [Suspect]
     Indication: HYPERTENSION
     Dosage: 5 MG, 1X/DAY
     Route: 048
     Dates: start: 20070201, end: 20100301
  2. SIMVASTATIN [Suspect]
     Dosage: 20 MG, 1X/DAY
     Route: 048
     Dates: start: 20100501
  3. AMLODIPINE BESYLATE [Suspect]
     Indication: HYPERTENSION
     Dosage: 5 MG, 1X/DAY
     Route: 048
     Dates: start: 20100301

REACTIONS (9)
  - MUSCLE TIGHTNESS [None]
  - HEADACHE [None]
  - POLLAKIURIA [None]
  - FATIGUE [None]
  - DECREASED APPETITE [None]
  - BURNING SENSATION [None]
  - PAIN [None]
  - BALANCE DISORDER [None]
  - FLATULENCE [None]
